FAERS Safety Report 6619534-4 (Version None)
Quarter: 2010Q1

REPORT INFORMATION
  Report Type: 
  Country: None (occurrence: None)
  Receive Date: 20100309
  Receipt Date: 20100225
  Transmission Date: 20100710
  Serious: Yes (Hospitalization, Other)
  Sender: FDA-Public Use
  Company Number: US-BAYER-200937298NA

PATIENT
  Age: 26 Year
  Sex: Female
  Weight: 81 kg

DRUGS (1)
  1. MIRENA [Suspect]
     Indication: CONTRACEPTION
     Dosage: AS USED: 20 ?G
     Route: 015
     Dates: start: 20091013, end: 20091102

REACTIONS (1)
  - UTERINE PERFORATION [None]
